FAERS Safety Report 16724189 (Version 1)
Quarter: 2019Q3

REPORT INFORMATION
  Report Type: Other
  Country: GB (occurrence: GB)
  Receive Date: 20190821
  Receipt Date: 20190821
  Transmission Date: 20191005
  Serious: Yes (Disabling, Other)
  Sender: FDA-Public Use
  Company Number: GB-MACLEODS PHARMACEUTICALS US LTD-MAC2019022642

PATIENT

DRUGS (1)
  1. ARIPIPRAZOLE. [Suspect]
     Active Substance: ARIPIPRAZOLE
     Indication: PRODUCT USED FOR UNKNOWN INDICATION
     Dosage: 300 MILLILITER
     Route: 065

REACTIONS (8)
  - Malaise [Not Recovered/Not Resolved]
  - Feeding disorder [Unknown]
  - Hypersomnia [Not Recovered/Not Resolved]
  - Abnormal weight gain [Unknown]
  - Disorientation [Not Recovered/Not Resolved]
  - Social avoidant behaviour [Not Recovered/Not Resolved]
  - Headache [Not Recovered/Not Resolved]
  - Sedation [Unknown]
